FAERS Safety Report 24430802 (Version 8)
Quarter: 2025Q2

REPORT INFORMATION
  Report Type: Report from Study
  Country: US (occurrence: US)
  Receive Date: 20241014
  Receipt Date: 20250508
  Transmission Date: 20250716
  Serious: Yes (Life-Threatening, Hospitalization, Other)
  Sender: ABBVIE
  Company Number: US-ABBVIE-5958488

PATIENT
  Age: 35 Year
  Sex: Female
  Weight: 113 kg

DRUGS (7)
  1. ORILISSA [Suspect]
     Active Substance: ELAGOLIX SODIUM
     Indication: Endometriosis
     Route: 048
     Dates: start: 200812, end: 20240711
  2. PROZAC [Concomitant]
     Active Substance: FLUOXETINE HYDROCHLORIDE
     Indication: Antidepressant therapy
     Route: 048
     Dates: start: 201104
  3. WELLBUTRIN [Concomitant]
     Active Substance: BUPROPION HYDROCHLORIDE
     Indication: Antidepressant therapy
     Route: 048
     Dates: start: 201104
  4. LABETALOL [Concomitant]
     Active Substance: LABETALOL
     Indication: Hypertension
     Route: 048
     Dates: start: 20240808
  5. METOCLOPRAMIDE [Concomitant]
     Active Substance: METOCLOPRAMIDE
     Indication: Dyspepsia
     Route: 048
     Dates: start: 20240812
  6. ONDANSETRON [Concomitant]
     Active Substance: ONDANSETRON
     Indication: Nausea
     Dosage: STRENGTH 4 MG DISINTEGRATING TABLET
     Route: 060
     Dates: start: 20240812
  7. FOLIC ACID [Concomitant]
     Active Substance: FOLIC ACID
     Indication: Product used for unknown indication

REACTIONS (2)
  - Stillbirth [Unknown]
  - Maternal exposure during pregnancy [Unknown]

NARRATIVE: CASE EVENT DATE: 20240911
